FAERS Safety Report 11796906 (Version 6)
Quarter: 2016Q2

REPORT INFORMATION
  Report Type: Spontaneous
  Country: JP (occurrence: JP)
  Receive Date: 20151203
  Receipt Date: 20160420
  Transmission Date: 20160815
  Serious: Yes (Hospitalization, Other)
  Sender: FDA-Public Use
  Company Number: JP-ASTELLAS-2015JP023698AA

PATIENT
  Age: 59 Year
  Sex: Male
  Weight: 45 kg

DRUGS (33)
  1. SEROQUEL [Suspect]
     Active Substance: QUETIAPINE FUMARATE
     Indication: DEPRESSION
     Route: 048
  2. SEROQUEL [Suspect]
     Active Substance: QUETIAPINE FUMARATE
     Indication: ILLNESS ANXIETY DISORDER
     Route: 048
     Dates: start: 20151125, end: 20151125
  3. DEPAKENE [Concomitant]
     Active Substance: VALPROIC ACID
     Indication: DEPRESSION
     Route: 048
  4. HANGEKOBOKUTO [Concomitant]
     Indication: ILLNESS ANXIETY DISORDER
     Route: 048
     Dates: start: 20151125, end: 20151125
  5. MAGMITT [Concomitant]
     Active Substance: MAGNESIUM OXIDE
     Indication: CONSTIPATION
     Route: 048
  6. BUPVERINE [Concomitant]
     Indication: BENIGN PROSTATIC HYPERPLASIA
     Route: 048
     Dates: end: 20151125
  7. SODIUM PICOSULFATE [Concomitant]
     Active Substance: SODIUM PICOSULFATE
     Indication: CONSTIPATION
     Dosage: AS NEEDED WHEN HAVING CONSTIPATION
     Route: 048
     Dates: end: 20151125
  8. RISUMIC [Concomitant]
     Active Substance: AMEZINIUM METILSULFATE
     Indication: ILLNESS ANXIETY DISORDER
     Route: 048
     Dates: start: 20151125, end: 20151125
  9. SENNOSIDE                          /00571901/ [Concomitant]
     Active Substance: SENNOSIDES A AND B
     Indication: CONSTIPATION
     Route: 048
  10. BETANIS [Suspect]
     Active Substance: MIRABEGRON
     Indication: SUICIDE ATTEMPT
     Route: 048
     Dates: start: 20151125, end: 20151125
  11. SEROQUEL [Suspect]
     Active Substance: QUETIAPINE FUMARATE
     Indication: SUICIDE ATTEMPT
  12. HANGEKOBOKUTO [Concomitant]
     Indication: DEPRESSION
     Route: 048
  13. TAMSULOSIN [Concomitant]
     Active Substance: TAMSULOSIN
     Indication: SUICIDE ATTEMPT
     Route: 048
     Dates: start: 20151125, end: 20151125
  14. RISPERIDONE. [Concomitant]
     Active Substance: RISPERIDONE
     Indication: DEPRESSION
     Dosage: AS NEEDED WHEN HAVING UNREST
     Route: 048
     Dates: end: 20151125
  15. ZALUTIA [Concomitant]
     Active Substance: TADALAFIL
     Indication: BENIGN PROSTATIC HYPERPLASIA
     Dosage: UNK UNK, UNKNOWN FREQ.
     Route: 048
  16. ZALUTIA [Concomitant]
     Active Substance: TADALAFIL
     Indication: SUICIDE ATTEMPT
     Route: 048
     Dates: start: 20151125, end: 20151125
  17. RISUMIC [Concomitant]
     Active Substance: AMEZINIUM METILSULFATE
     Indication: DEPRESSION
     Route: 048
  18. MAGMITT [Concomitant]
     Active Substance: MAGNESIUM OXIDE
     Indication: SUICIDE ATTEMPT
     Route: 048
     Dates: start: 20151125, end: 20151125
  19. POSTERISAN FORTE                   /01567801/ [Concomitant]
     Indication: HAEMORRHOIDS
     Dosage: UNK UNK, TWICE DAILY
     Route: 061
     Dates: end: 20151125
  20. RISPERIDONE. [Concomitant]
     Active Substance: RISPERIDONE
     Indication: ILLNESS ANXIETY DISORDER
  21. RISUMIC [Concomitant]
     Active Substance: AMEZINIUM METILSULFATE
     Indication: SUICIDE ATTEMPT
  22. TAMSULOSIN [Concomitant]
     Active Substance: TAMSULOSIN
     Indication: BENIGN PROSTATIC HYPERPLASIA
     Dosage: 0.2 MG, ONCE DAILY
     Route: 048
  23. FLUNITRAZEPAM [Concomitant]
     Active Substance: FLUNITRAZEPAM
     Indication: ILLNESS ANXIETY DISORDER
     Route: 048
     Dates: start: 20151125, end: 20151125
  24. SENNOSIDE                          /00571901/ [Concomitant]
     Active Substance: SENNOSIDES A AND B
     Indication: SUICIDE ATTEMPT
     Route: 048
     Dates: start: 20151125, end: 20151125
  25. DEPAKENE [Concomitant]
     Active Substance: VALPROIC ACID
     Indication: ILLNESS ANXIETY DISORDER
     Route: 048
  26. DEPAKENE [Concomitant]
     Active Substance: VALPROIC ACID
     Indication: SUICIDE ATTEMPT
     Route: 048
     Dates: start: 20151125, end: 20151125
  27. FLUNITRAZEPAM [Concomitant]
     Active Substance: FLUNITRAZEPAM
     Indication: DEPRESSION
     Route: 048
  28. MOSAPRIDE CITRATE [Concomitant]
     Active Substance: MOSAPRIDE CITRATE
     Indication: DEPRESSION
     Route: 048
  29. MOSAPRIDE CITRATE [Concomitant]
     Active Substance: MOSAPRIDE CITRATE
     Indication: ILLNESS ANXIETY DISORDER
     Route: 048
     Dates: start: 20151125, end: 20151125
  30. MOSAPRIDE CITRATE [Concomitant]
     Active Substance: MOSAPRIDE CITRATE
     Indication: SUICIDE ATTEMPT
  31. BETANIS [Suspect]
     Active Substance: MIRABEGRON
     Indication: HYPERTONIC BLADDER
     Dosage: UNK UNK, UNKNOWN FREQ.
     Route: 048
  32. FLUNITRAZEPAM [Concomitant]
     Active Substance: FLUNITRAZEPAM
     Indication: SUICIDE ATTEMPT
  33. HANGEKOBOKUTO [Concomitant]
     Indication: SUICIDE ATTEMPT

REACTIONS (4)
  - Suicide attempt [Unknown]
  - Intentional overdose [Unknown]
  - Ventricular arrhythmia [Recovered/Resolved]
  - Long QT syndrome [Recovered/Resolved]

NARRATIVE: CASE EVENT DATE: 20151125
